FAERS Safety Report 9057593 (Version 2)
Quarter: 2013Q1

REPORT INFORMATION
  Report Type: Spontaneous
  Country: US (occurrence: US)
  Receive Date: 20130204
  Receipt Date: 20130313
  Transmission Date: 20140127
  Serious: No
  Sender: FDA-Public Use
  Company Number: US-PFIZER INC-2013041754

PATIENT
  Age: 40 Year
  Sex: Female
  Weight: 64.4 kg

DRUGS (2)
  1. CYTOMEL [Suspect]
     Indication: HYPOTHYROIDISM
     Dosage: 25 UG, DAILY
     Dates: start: 2009
  2. SYNTHROID [Concomitant]
     Indication: HYPOTHYROIDISM
     Dosage: 0.88 UG, DAILY

REACTIONS (1)
  - Drug ineffective [Unknown]
